FAERS Safety Report 20471290 (Version 1)
Quarter: 2022Q1

REPORT INFORMATION
  Report Type: Spontaneous
  Country: US (occurrence: US)
  Receive Date: 20220214
  Receipt Date: 20220214
  Transmission Date: 20220423
  Serious: No
  Sender: FDA-Public Use
  Company Number: US-TASMAN PHARMA, INC.-2021TSM00350

PATIENT
  Sex: Female

DRUGS (1)
  1. CLOTRIMAZOLE [Suspect]
     Active Substance: CLOTRIMAZOLE
     Indication: Onychomycosis
     Dosage: 2 DROPS, TO RIGHT THUMBNAIL, 2X/DAY
     Route: 061
     Dates: start: 20211017

REACTIONS (3)
  - Pain in extremity [Not Recovered/Not Resolved]
  - Product use complaint [Not Recovered/Not Resolved]
  - Off label use [Not Recovered/Not Resolved]

NARRATIVE: CASE EVENT DATE: 20211001
